FAERS Safety Report 8444242-7 (Version None)
Quarter: 2012Q2

REPORT INFORMATION
  Report Type: 
  Country: None (occurrence: None)
  Receive Date: 20120618
  Receipt Date: 20120606
  Transmission Date: 20120825
  Serious: Yes (Death)
  Sender: FDA-Public Use
  Company Number: US-ASTELLAS-2012US005227

PATIENT
  Sex: Female
  Weight: 68 kg

DRUGS (3)
  1. TARCEVA [Suspect]
     Indication: NON-SMALL CELL LUNG CANCER
     Dosage: 150 MG, UID/QD
     Route: 048
     Dates: start: 20120508
  2. AVASTIN [Suspect]
     Indication: NON-SMALL CELL LUNG CANCER
     Dosage: 1258 MG, OTHER, Q21 DAYS
     Route: 042
     Dates: start: 20110921, end: 20120501
  3. ALIMTA [Suspect]
     Indication: NON-SMALL CELL LUNG CANCER
     Dosage: 920 MG, OTHER, Q21 DAYS
     Route: 042
     Dates: start: 20120412, end: 20120501

REACTIONS (1)
  - DEATH [None]
